FAERS Safety Report 14541691 (Version 2)
Quarter: 2021Q4

REPORT INFORMATION
  Report Type: Spontaneous
  Country: US (occurrence: US)
  Receive Date: 20180216
  Receipt Date: 20211119
  Transmission Date: 20220303
  Serious: No
  Sender: FDA-Public Use
  Company Number: US-JNJFOC-20180206454

PATIENT
  Sex: Male

DRUGS (1)
  1. RISPERDAL [Suspect]
     Active Substance: RISPERIDONE
     Indication: Product used for unknown indication
     Dosage: VARYING DOSE 0.5 MG EVERY NIGHT AT BED TIME AND 1 MG AND 2 MG TWICE A DAY
     Route: 048
     Dates: start: 200011, end: 20060221

REACTIONS (2)
  - Emotional disorder [Unknown]
  - Gynaecomastia [Unknown]
